FAERS Safety Report 17064102 (Version 2)
Quarter: 2019Q4

REPORT INFORMATION
  Report Type: Spontaneous
  Country: BR (occurrence: BR)
  Receive Date: 20191122
  Receipt Date: 20191205
  Transmission Date: 20200122
  Serious: Yes (Other)
  Sender: FDA-Public Use
  Company Number: BR-PFIZER INC-2019489092

PATIENT
  Age: 87 Year
  Sex: Male
  Weight: 64 kg

DRUGS (3)
  1. LORAX [LORAZEPAM] [Suspect]
     Active Substance: LORAZEPAM
     Dosage: 1 MG, 1X/DAY
     Dates: end: 2018
  2. LORAX [LORAZEPAM] [Suspect]
     Active Substance: LORAZEPAM
     Indication: SLEEP DISORDER
     Dosage: 1 MG, DAILY
  3. LORAX [LORAZEPAM] [Suspect]
     Active Substance: LORAZEPAM
     Dosage: 1 MG, 1X/DAY
     Dates: start: 201909

REACTIONS (4)
  - Hernia [Recovered/Resolved]
  - Renal disorder [Unknown]
  - Drug dependence [Recovered/Resolved]
  - Blood creatinine abnormal [Unknown]

NARRATIVE: CASE EVENT DATE: 2018
